FAERS Safety Report 8950951 (Version 2)
Quarter: 2013Q2

REPORT INFORMATION
  Report Type: Report from Study
  Country: US (occurrence: US)
  Receive Date: 20121207
  Receipt Date: 20130612
  Transmission Date: 20140414
  Serious: Yes (Hospitalization)
  Sender: FDA-Public Use
  Company Number: US-SANOFI-AVENTIS-2012SA087736

PATIENT
  Age: 56 Year
  Sex: Female
  Weight: 91 kg

DRUGS (14)
  1. DOCETAXEL [Suspect]
     Indication: HER-2 POSITIVE BREAST CANCER
     Dosage: FORM-VIALS,DOSE LEVEL:75MG/M2
     Route: 042
     Dates: start: 20090609
  2. DOCETAXEL [Suspect]
     Indication: HER-2 POSITIVE BREAST CANCER
     Route: 042
     Dates: start: 20090630
  3. TRASTUZUMAB [Suspect]
     Indication: HER-2 POSITIVE BREAST CANCER
     Dosage: FORM-VIALS,DOSE LEVEL-8MG/KG
     Route: 042
     Dates: start: 20090609
  4. CARBOPLATIN [Suspect]
     Indication: HER-2 POSITIVE BREAST CANCER
     Dosage: DOSE LEVEL=6 AUC,FORM-VIALS
     Route: 042
     Dates: start: 20090609
  5. CARBOPLATIN [Suspect]
     Indication: HER-2 POSITIVE BREAST CANCER
     Route: 042
     Dates: start: 20090630
  6. LISINOPRIL [Concomitant]
     Dates: start: 2007
  7. OMEPRAZOLE [Concomitant]
     Dates: start: 2008
  8. METOPROLOL [Concomitant]
     Dates: start: 2005
  9. WELLBUTRIN [Concomitant]
     Dates: start: 2007
  10. HYDROCHLOROTHIAZIDE [Concomitant]
     Dates: start: 2005
  11. PROZAC [Concomitant]
     Dates: start: 2007
  12. SYNTHROID [Concomitant]
     Dates: start: 2004
  13. ZOCOR [Concomitant]
     Dates: start: 2006
  14. CALCIUM [Concomitant]
     Dates: start: 2008

REACTIONS (3)
  - Hyponatraemia [Recovered/Resolved]
  - Enterocolitis infectious [Recovered/Resolved]
  - Dehydration [Recovered/Resolved]
